FAERS Safety Report 20499687 (Version 3)
Quarter: 2022Q3

REPORT INFORMATION
  Report Type: Report from Study
  Country: DE (occurrence: None)
  Receive Date: 20220222
  Receipt Date: 20220922
  Transmission Date: 20221027
  Serious: Yes (Hospitalization)
  Sender: FDA-Public Use
  Company Number: DE-ROCHE-3024717

PATIENT
  Age: 49 Year
  Sex: Female
  Weight: 61 kg

DRUGS (34)
  1. ATEZOLIZUMAB [Suspect]
     Active Substance: ATEZOLIZUMAB
     Indication: Triple negative breast cancer
     Dosage: ON 06/JAN/2022, RECEIVED LAST DOSE OF ATEZOLIZUMAB BEFORE EVENT.
     Route: 041
     Dates: start: 20211112
  2. PACLITAXEL [Suspect]
     Active Substance: PACLITAXEL
     Indication: Triple negative breast cancer
     Dosage: DATE OF LAST DOSE PRIOR TO SAE: 06/JAN/2022, 139 MG
     Route: 042
     Dates: start: 20211126
  3. CARBOPLATIN [Suspect]
     Active Substance: CARBOPLATIN
     Indication: Triple negative breast cancer
     Dosage: AREA UNDER THE CURVE OF 2?DATE OF LAST DOSE PRIOR TO SAE: 06/JAN/2022, 220 MG
     Route: 042
     Dates: start: 20211126
  4. DEXAMETHASONE [Concomitant]
     Active Substance: DEXAMETHASONE
     Dates: start: 20211126, end: 20211126
  5. DEXAMETHASONE [Concomitant]
     Active Substance: DEXAMETHASONE
     Dates: start: 20211125
  6. DEXAMETHASONE [Concomitant]
     Active Substance: DEXAMETHASONE
     Dates: start: 20211202, end: 20211219
  7. DEXAMETHASONE [Concomitant]
     Active Substance: DEXAMETHASONE
     Dates: start: 20211125, end: 20220324
  8. DEXAMETHASONE [Concomitant]
     Active Substance: DEXAMETHASONE
     Dates: start: 20211201, end: 20211208
  9. CLEMASTINE [Concomitant]
     Active Substance: CLEMASTINE
     Dates: start: 20211125
  10. CLEMASTINE [Concomitant]
     Active Substance: CLEMASTINE
     Dates: start: 20211126, end: 20211126
  11. APREPITANT [Concomitant]
     Active Substance: APREPITANT
     Dates: start: 20211203
  12. APREPITANT [Concomitant]
     Active Substance: APREPITANT
     Dates: start: 20211202
  13. APREPITANT [Concomitant]
     Active Substance: APREPITANT
     Dates: start: 20211125, end: 20211125
  14. APREPITANT [Concomitant]
     Active Substance: APREPITANT
     Dates: start: 20211126, end: 20211209
  15. APREPITANT [Concomitant]
     Active Substance: APREPITANT
     Dates: start: 20211223, end: 20220324
  16. APREPITANT [Concomitant]
     Active Substance: APREPITANT
     Dates: start: 20211127, end: 20211211
  17. APREPITANT [Concomitant]
     Active Substance: APREPITANT
     Dates: start: 20211224, end: 20220326
  18. PANTOPRAZOLE [Concomitant]
     Active Substance: PANTOPRAZOLE
     Dates: start: 20211125
  19. PANTOPRAZOLE [Concomitant]
     Active Substance: PANTOPRAZOLE
     Dates: start: 20211126, end: 20220324
  20. GRANISETRONE [Concomitant]
     Dates: start: 20211125
  21. GRANISETRONE [Concomitant]
     Dates: start: 20211126, end: 20220324
  22. CHOLECALCIFEROL [Concomitant]
     Active Substance: CHOLECALCIFEROL
     Dates: start: 20211112, end: 20211126
  23. CHOLECALCIFEROL [Concomitant]
     Active Substance: CHOLECALCIFEROL
     Dates: start: 20211127
  24. METOCLOPRAMIDE [Concomitant]
     Active Substance: METOCLOPRAMIDE
     Dates: start: 20211026, end: 20220331
  25. ONDANSETRON [Concomitant]
     Active Substance: ONDANSETRON
     Dates: start: 20211126, end: 20220331
  26. FILGRASTIM [Concomitant]
     Active Substance: FILGRASTIM
     Dates: start: 20211209
  27. FILGRASTIM [Concomitant]
     Active Substance: FILGRASTIM
     Dates: start: 20211213, end: 20220301
  28. COMIRNATY [Concomitant]
     Active Substance: TOZINAMERAN
     Dates: start: 20211206, end: 20211206
  29. PREDNISOLONE [Concomitant]
     Active Substance: PREDNISOLONE
     Dates: start: 20211126, end: 20211126
  30. BUTYLSCOPOLAMINE BROMIDE [Concomitant]
     Active Substance: BUTYLSCOPOLAMINE BROMIDE
     Dates: start: 20211202
  31. CLOTRIMAZOLE [Concomitant]
     Active Substance: CLOTRIMAZOLE
     Dates: start: 20211216, end: 20211218
  32. THIAMINE [Concomitant]
     Active Substance: THIAMINE
     Dates: start: 20211112
  33. PYRIDOXINE [Concomitant]
     Active Substance: PYRIDOXINE
     Dates: start: 20211112
  34. LACTIC ACID [Concomitant]
     Active Substance: LACTIC ACID
     Dates: start: 202112, end: 202112

REACTIONS (1)
  - Pyrexia [Recovered/Resolved]

NARRATIVE: CASE EVENT DATE: 20220107
